FAERS Safety Report 4760859-5 (Version None)
Quarter: 2005Q3

REPORT INFORMATION
  Report Type: 
  Country: None (occurrence: None)
  Receive Date: 20050826
  Receipt Date: 20041124
  Transmission Date: 20060218
  Serious: Yes (Death)
  Sender: FDA-Public Use
  Company Number: USA-2004-0017815

PATIENT
  Age: 20 Year
  Sex: Female
  Weight: 145.1 kg

DRUGS (6)
  1. OXYCODONE HCL [Suspect]
  2. HYDROCODONE BITARTRATE [Suspect]
  3. VALPROIC ACID [Suspect]
  4. ACETAMINOPHEN [Suspect]
  5. QUETIAPINE FUMARATE [Suspect]
  6. VENLAFAXINE HCL [Suspect]

REACTIONS (1)
  - MULTIPLE DRUG OVERDOSE [None]
